FAERS Safety Report 16877972 (Version 1)
Quarter: 2019Q4

REPORT INFORMATION
  Report Type: Spontaneous
  Country: UA (occurrence: UA)
  Receive Date: 20191002
  Receipt Date: 20191002
  Transmission Date: 20200122
  Serious: Yes (Other)
  Sender: FDA-Public Use
  Company Number: PHHY2019UA227001

PATIENT
  Age: 4 Day
  Sex: Male

DRUGS (8)
  1. SOTALOL. [Suspect]
     Active Substance: SOTALOL
     Dosage: 80 MG, BID
     Route: 064
  2. SOTALOL. [Suspect]
     Active Substance: SOTALOL
     Dosage: 120 MG, BID
     Route: 064
  3. BETAMETHASONE. [Suspect]
     Active Substance: BETAMETHASONE
     Indication: FOETAL EXPOSURE DURING PREGNANCY
     Dosage: UNK
     Route: 064
  4. AMIODARONE [Suspect]
     Active Substance: AMIODARONE
     Indication: FOETAL EXPOSURE DURING PREGNANCY
     Dosage: UNK
     Route: 064
  5. SOTALOL. [Suspect]
     Active Substance: SOTALOL
     Dosage: 120 MG, BID
     Route: 064
  6. HEXOPRENALINE SULFATE [Suspect]
     Active Substance: HEXOPRENALINE SULFATE
     Indication: FOETAL EXPOSURE DURING PREGNANCY
     Dosage: UNK, (MATERNAL DOSE 25 MG)
     Route: 064
  7. SOTALOL. [Suspect]
     Active Substance: SOTALOL
     Indication: ATRIAL FIBRILLATION
     Dosage: 80 MG, QID
     Route: 064
  8. SOTALOL. [Suspect]
     Active Substance: SOTALOL
     Dosage: 80 MG, QD
     Route: 064

REACTIONS (4)
  - Premature baby [Unknown]
  - Drug ineffective [Unknown]
  - Low birth weight baby [Unknown]
  - Foetal exposure during pregnancy [Unknown]
